FAERS Safety Report 18608033 (Version 1)
Quarter: 2020Q4

REPORT INFORMATION
  Report Type: Other
  Country: CA (occurrence: CA)
  Receive Date: 20201211
  Receipt Date: 20201211
  Transmission Date: 20210114
  Serious: Yes (Other)
  Sender: FDA-Public Use
  Company Number: CA-CELLTRION INC.-2020CA033361

PATIENT

DRUGS (6)
  1. ACETAMINOPHEN. [Concomitant]
     Active Substance: ACETAMINOPHEN
     Dosage: 1000.0 MILLIGRAM
     Route: 048
  2. RITUXIMAB (UNKNOWN) [Suspect]
     Active Substance: RITUXIMAB
     Indication: PEMPHIGUS
     Dosage: 1000.0 MILLIGRAM
     Route: 042
  3. DIPHENHYDRAMINE. [Concomitant]
     Active Substance: DIPHENHYDRAMINE
     Dosage: 50.0 MILLIGRAM
     Route: 048
  4. PREVACID [Concomitant]
     Active Substance: LANSOPRAZOLE
  5. DOMPERIDONE [Concomitant]
     Active Substance: DOMPERIDONE
     Dosage: UNK
  6. METHYLPREDNISOLONE. [Concomitant]
     Active Substance: METHYLPREDNISOLONE
     Dosage: 100.0 MILLIGRAM
     Route: 042

REACTIONS (7)
  - Pharyngeal ulceration [Unknown]
  - Therapeutic response shortened [Unknown]
  - Off label use [Unknown]
  - Cataract [Unknown]
  - Oral mucosa erosion [Unknown]
  - Mouth ulceration [Unknown]
  - Hypertension [Unknown]
